FAERS Safety Report 15719056 (Version 1)
Quarter: 2018Q4

REPORT INFORMATION
  Report Type: Spontaneous
  Country: JP (occurrence: JP)
  Receive Date: 20181213
  Receipt Date: 20181213
  Transmission Date: 20190205
  Serious: Yes (Other)
  Sender: FDA-Public Use
  Company Number: JP-PFIZER INC-2018512998

PATIENT
  Age: 68 Year
  Sex: Male

DRUGS (2)
  1. MEROPEN [Suspect]
     Active Substance: MEROPENEM
     Indication: CARDIAC FAILURE
     Dosage: 1 MG, DAILY
     Route: 048
     Dates: start: 20181101, end: 20181102
  2. SAMSCA [Interacting]
     Active Substance: TOLVAPTAN
     Indication: CARDIAC FAILURE
     Dosage: 15 MG, DAILY
     Route: 048
     Dates: start: 20181028, end: 20181102

REACTIONS (3)
  - Hypernatraemia [Recovered/Resolved]
  - Cardiac failure [Unknown]
  - Drug interaction [Unknown]

NARRATIVE: CASE EVENT DATE: 20181102
